FAERS Safety Report 23290860 (Version 1)
Quarter: 2023Q4

REPORT INFORMATION
  Report Type: Spontaneous
  Country: CN (occurrence: CN)
  Receive Date: 20231213
  Receipt Date: 20231213
  Transmission Date: 20240109
  Serious: Yes (Other)
  Sender: FDA-Public Use
  Company Number: CN-AstraZeneca-2023-68330

PATIENT

DRUGS (2)
  1. METOPROLOL [Suspect]
     Active Substance: METOPROLOL
     Indication: Product used for unknown indication
     Dosage: UNK
     Route: 048
  2. METOPROLOL TARTRATE [Suspect]
     Active Substance: METOPROLOL TARTRATE
     Indication: Product used for unknown indication
     Dosage: UNK
     Route: 048

REACTIONS (10)
  - Angina unstable [Unknown]
  - Eating disorder [Unknown]
  - Decreased activity [Unknown]
  - Dysstasia [Unknown]
  - Asthenia [Unknown]
  - Poor quality sleep [Unknown]
  - Abdominal discomfort [Unknown]
  - Fatigue [Unknown]
  - Somnolence [Unknown]
  - Product dose omission in error [Unknown]
